FAERS Safety Report 13726046 (Version 10)
Quarter: 2017Q4

REPORT INFORMATION
  Report Type: Report from Study
  Country: US (occurrence: US)
  Receive Date: 20170706
  Receipt Date: 20171024
  Transmission Date: 20180320
  Serious: Yes (Death, Hospitalization, Other)
  Sender: FDA-Public Use
  Company Number: US-BAYER-2017-123039

PATIENT
  Age: 73 Year
  Sex: Female
  Weight: 72.65 kg

DRUGS (9)
  1. ADEMPAS [Suspect]
     Active Substance: RIOCIGUAT
     Indication: PULMONARY ARTERIAL HYPERTENSION
     Dosage: 2 MG, TID
     Route: 048
     Dates: start: 20170728
  2. ADEMPAS [Suspect]
     Active Substance: RIOCIGUAT
     Indication: PULMONARY ARTERIAL HYPERTENSION
     Dosage: UNK
     Dates: start: 20170130
  3. ADEMPAS [Suspect]
     Active Substance: RIOCIGUAT
     Indication: PULMONARY ARTERIAL HYPERTENSION
     Dosage: 2.0 MG, TID
  4. UPTRAVI [Concomitant]
     Active Substance: SELEXIPAG
     Dosage: 200 MCG PM
  5. SORBITOL [SORBITOL] [Suspect]
     Active Substance: SORBITOL
     Dosage: UNK
  6. ADEMPAS [Suspect]
     Active Substance: RIOCIGUAT
     Indication: PULMONARY ARTERIAL HYPERTENSION
     Dosage: 2.5 MG, TID
  7. ADEMPAS [Suspect]
     Active Substance: RIOCIGUAT
     Indication: PULMONARY ARTERIAL HYPERTENSION
     Dosage: 2 MG, TID
     Route: 048
  8. UPTRAVI [Concomitant]
     Active Substance: SELEXIPAG
     Dosage: 400 MCG AM
  9. WARFARIN [Concomitant]
     Active Substance: WARFARIN
     Dosage: UNK

REACTIONS (26)
  - Anxiety [Not Recovered/Not Resolved]
  - Oedema [Not Recovered/Not Resolved]
  - Pneumonia [Unknown]
  - Abdominal pain upper [Unknown]
  - Abdominal pain upper [None]
  - Abdominal discomfort [None]
  - Headache [None]
  - Dehydration [None]
  - Fatigue [Not Recovered/Not Resolved]
  - Cardiac arrest [Fatal]
  - Oedema peripheral [Unknown]
  - Constipation [Not Recovered/Not Resolved]
  - Diarrhoea [Recovering/Resolving]
  - Abdominal distension [None]
  - Dyspnoea [Not Recovered/Not Resolved]
  - Abdominal pain upper [None]
  - Headache [Not Recovered/Not Resolved]
  - Diarrhoea [Unknown]
  - Blood sodium increased [None]
  - Skin disorder [None]
  - Depression [Not Recovered/Not Resolved]
  - Blood potassium abnormal [None]
  - Faecaloma [Unknown]
  - Dyspnoea exertional [Not Recovered/Not Resolved]
  - Chest discomfort [Not Recovered/Not Resolved]
  - Nausea [Not Recovered/Not Resolved]

NARRATIVE: CASE EVENT DATE: 2017
